FAERS Safety Report 10913363 (Version 1)
Quarter: 2015Q1

REPORT INFORMATION
  Report Type: Spontaneous
  Country: US (occurrence: None)
  Receive Date: 20150310
  Receipt Date: 20150310
  Transmission Date: 20150721
  Serious: No
  Sender: FDA-Public Use
  Company Number: None

PATIENT
  Age: 43 Year
  Sex: Female

DRUGS (5)
  1. RITUXAN [Concomitant]
     Active Substance: RITUXIMAB
  2. NAPROXEN. [Concomitant]
     Active Substance: NAPROXEN
  3. AMPYRA [Suspect]
     Active Substance: DALFAMPRIDINE
     Indication: NEUROMYELITIS OPTICA
     Route: 048
     Dates: start: 201402, end: 201403
  4. METHOCARBAMOL. [Concomitant]
     Active Substance: METHOCARBAMOL
  5. DIAZEPAM. [Concomitant]
     Active Substance: DIAZEPAM

REACTIONS (2)
  - Drug effect decreased [None]
  - Therapy cessation [None]

NARRATIVE: CASE EVENT DATE: 20140602
